FAERS Safety Report 4947689-6 (Version None)
Quarter: 2006Q1

REPORT INFORMATION
  Report Type: 
  Country: None (occurrence: None)
  Receive Date: 20060314
  Receipt Date: 20060302
  Transmission Date: 20060701
  Serious: Yes (Hospitalization)
  Sender: FDA-Public Use
  Company Number: 2006031349

PATIENT
  Age: 50 Year
  Sex: Female
  Weight: 80.2867 kg

DRUGS (13)
  1. LYRICA [Suspect]
     Indication: ILL-DEFINED DISORDER
     Dosage: 1500 MG (500 MG, 3 IN 1 D),
     Dates: start: 20060201
  2. PREDNISONE TAB [Suspect]
     Indication: ILL-DEFINED DISORDER
     Dosage: 650 MG QAM, 600 MG QNOON,
     Dates: start: 20060201, end: 20060205
  3. COPAXONE [Suspect]
     Indication: MULTIPLE SCLEROSIS
     Dosage: 20 MG (20 MG, 1 IN 1 D), SUBCUTANEOUS
     Route: 058
     Dates: start: 20051005
  4. CENTRUM SILVER (ASCORBIC ACID, CALCIUM, MINERALS NOS, RETINOL, TOCOPHE [Concomitant]
  5. VITAMIN C (VITAMIN C) [Concomitant]
  6. VITAMIN E [Concomitant]
  7. IRON (IRON) [Concomitant]
  8. ZANAFLEX [Concomitant]
  9. ESTRACE [Concomitant]
  10. WELLBUTRIN [Concomitant]
  11. QUININE SULFATE [Concomitant]
  12. PRILOSEC [Concomitant]
  13. RELPAX [Concomitant]

REACTIONS (7)
  - ANAPHYLACTIC REACTION [None]
  - CARDIAC DISORDER [None]
  - CHEST PAIN [None]
  - DRUG HYPERSENSITIVITY [None]
  - DYSPEPSIA [None]
  - HYPOAESTHESIA [None]
  - PALPITATIONS [None]
